FAERS Safety Report 5622704-5 (Version None)
Quarter: 2008Q1

REPORT INFORMATION
  Report Type: 
  Country: None (occurrence: None)
  Receive Date: 20080208
  Receipt Date: 20080208
  Transmission Date: 20080703
  Serious: No
  Sender: FDA-Public Use
  Company Number: None

PATIENT
  Age: 48 Year
  Sex: Male

DRUGS (1)
  1. ADALIMUMAB [Suspect]
     Indication: PSORIATIC ARTHROPATHY
     Dosage: 40MG OTHER SQ
     Route: 058
     Dates: start: 20070801, end: 20070821

REACTIONS (3)
  - INJECTION SITE PAIN [None]
  - NO THERAPEUTIC RESPONSE [None]
  - PAIN [None]
